FAERS Safety Report 9700983 (Version 1)
Quarter: 2013Q4

REPORT INFORMATION
  Report Type: Spontaneous
  Country: US (occurrence: None)
  Receive Date: 20131120
  Receipt Date: 20131120
  Transmission Date: 20140711
  Serious: No
  Sender: FDA-Public Use
  Company Number: None

PATIENT
  Age: 72 Year
  Sex: Male

DRUGS (2)
  1. ASPIRIN [Suspect]
  2. ASPIRIN [Suspect]
     Dosage: 1 PILL ONCE DAILY

REACTIONS (4)
  - Dizziness [None]
  - Headache [None]
  - Pruritus [None]
  - Product commingling [None]
